FAERS Safety Report 12167721 (Version 1)
Quarter: 2016Q1

REPORT INFORMATION
  Report Type: Spontaneous
  Country: US (occurrence: None)
  Receive Date: 20160309
  Receipt Date: 20160309
  Transmission Date: 20160526
  Serious: Yes (Hospitalization)
  Sender: FDA-Public Use
  Company Number: None

PATIENT
  Age: 60 Year
  Sex: Male
  Weight: 112.8 kg

DRUGS (2)
  1. SPIRONOLACTONE. [Suspect]
     Active Substance: SPIRONOLACTONE
     Indication: HYPERTENSION
     Dosage: 10/29/2015 02/11/2015
     Route: 048
  2. LISINOPRIL. [Suspect]
     Active Substance: LISINOPRIL
     Indication: HYPERTENSION
     Dosage: 03/11/2015 THR 02/11/2015
     Route: 048

REACTIONS (6)
  - Malaise [None]
  - Lethargy [None]
  - Fatigue [None]
  - Muscular weakness [None]
  - Confusional state [None]
  - Hyperkalaemia [None]

NARRATIVE: CASE EVENT DATE: 20160211
